FAERS Safety Report 7469524-7 (Version None)
Quarter: 2011Q2

REPORT INFORMATION
  Report Type: 
  Country: None (occurrence: None)
  Receive Date: 20110510
  Receipt Date: 20110502
  Transmission Date: 20111010
  Serious: Yes (Hospitalization)
  Sender: FDA-Public Use
  Company Number: PHHY2011US37041

PATIENT
  Age: 58 Year
  Sex: Male

DRUGS (3)
  1. SIMVASTATIN [Concomitant]
     Dosage: UNK UKN, UNK
  2. OMEPRAZOLE [Concomitant]
     Dosage: UNK UKN, UNK
  3. GILENYA [Suspect]
     Indication: MULTIPLE SCLEROSIS
     Dosage: 0.5 MG, DAILY
     Route: 048
     Dates: start: 20101116

REACTIONS (1)
  - PYREXIA [None]
